FAERS Safety Report 5075613-7 (Version None)
Quarter: 2006Q3

REPORT INFORMATION
  Report Type: 
  Country: None (occurrence: None)
  Receive Date: 20060809
  Receipt Date: 20060807
  Transmission Date: 20061208
  Serious: Yes (Hospitalization)
  Sender: FDA-Public Use
  Company Number: 2006CG01339

PATIENT
  Age: 19 Year
  Sex: Male

DRUGS (1)
  1. TENORMIN [Suspect]
     Route: 048
     Dates: start: 20060621, end: 20060621

REACTIONS (2)
  - INTENTIONAL OVERDOSE [None]
  - SUICIDE ATTEMPT [None]
